FAERS Safety Report 25755996 (Version 1)
Quarter: 2025Q3

REPORT INFORMATION
  Report Type: Spontaneous
  Country: US (occurrence: None)
  Receive Date: 20250902
  Receipt Date: 20250902
  Transmission Date: 20251021
  Serious: Yes (Hospitalization)
  Sender: FDA-CTU
  Company Number: None

PATIENT
  Age: 79 Year
  Sex: Female

DRUGS (12)
  1. MYCOPHENOLIC ACID [Suspect]
     Active Substance: MYCOPHENOLIC ACID
     Indication: Renal transplant
     Dosage: 2 TABLETS BID ORAL
     Route: 048
  2. NULOJIX [Suspect]
     Active Substance: BELATACEPT
  3. PREDNISONE [Suspect]
     Active Substance: PREDNISONE
  4. FUROSEMIDE [Concomitant]
     Active Substance: FUROSEMIDE
  5. ASPIRIN [Concomitant]
     Active Substance: ASPIRIN
  6. ELIQUIS [Concomitant]
     Active Substance: APIXABAN
  7. NOVOLOG [Concomitant]
     Active Substance: INSULIN ASPART
  8. VITAMIN D3 [Concomitant]
     Active Substance: CHOLECALCIFEROL
  9. ATORVASTATIN [Concomitant]
     Active Substance: ATORVASTATIN
  10. CITALOPRAM [Concomitant]
     Active Substance: CITALOPRAM
  11. CARVEDILOL [Concomitant]
     Active Substance: CARVEDILOL
  12. LANTUS SOLOSTAR [Concomitant]
     Active Substance: INSULIN GLARGINE

REACTIONS (2)
  - Therapy change [None]
  - Immunosuppression [None]

NARRATIVE: CASE EVENT DATE: 20250825
